FAERS Safety Report 21352359 (Version 1)
Quarter: 2022Q3

REPORT INFORMATION
  Report Type: Spontaneous
  Country: US (occurrence: US)
  Receive Date: 20220920
  Receipt Date: 20220920
  Transmission Date: 20221026
  Serious: Yes (Other)
  Sender: FDA-Public Use
  Company Number: US-SA-SAC20220915000456

PATIENT
  Age: 53 Year
  Sex: Female

DRUGS (9)
  1. AUBAGIO [Suspect]
     Active Substance: TERIFLUNOMIDE
     Indication: Relapsing-remitting multiple sclerosis
     Dosage: 1 DF; QD
     Route: 048
     Dates: start: 2013, end: 2020
  2. PAROXETINE HYDROCHLORIDE [Concomitant]
     Active Substance: PAROXETINE HYDROCHLORIDE
     Dosage: 5MG
  3. AZITHROMYCIN [Concomitant]
     Active Substance: AZITHROMYCIN
     Dosage: 5MG
  4. GABAPENTIN [Concomitant]
     Active Substance: GABAPENTIN
  5. TEMAZEPAM [Concomitant]
     Active Substance: TEMAZEPAM
  6. PREMARIN [Concomitant]
     Active Substance: ESTROGENS, CONJUGATED
  7. PAXIL CR [Concomitant]
     Active Substance: PAROXETINE HYDROCHLORIDE
     Dosage: 125MG
  8. PROAIR HFA [Concomitant]
     Active Substance: ALBUTEROL SULFATE
  9. OXYBUTYNIN [Concomitant]
     Active Substance: OXYBUTYNIN

REACTIONS (8)
  - Leukopenia [Unknown]
  - Neuropathy peripheral [Unknown]
  - COVID-19 [Unknown]
  - Weight decreased [Unknown]
  - Alopecia [Unknown]
  - Paraesthesia [Unknown]
  - Hypoaesthesia [Unknown]
  - Carpal tunnel syndrome [Unknown]

NARRATIVE: CASE EVENT DATE: 20200101
